FAERS Safety Report 18964787 (Version 3)
Quarter: 2024Q1

REPORT INFORMATION
  Report Type: Spontaneous
  Country: US (occurrence: US)
  Receive Date: 20210303
  Receipt Date: 20240314
  Transmission Date: 20240410
  Serious: Yes (Hospitalization)
  Sender: FDA-Public Use
  Company Number: US-AMNEAL PHARMACEUTICALS-2020-AMRX-00986

PATIENT
  Age: 64 Year
  Sex: Male
  Weight: 81 kg

DRUGS (9)
  1. RYTARY [Suspect]
     Active Substance: CARBIDOPA\LEVODOPA
     Indication: Parkinson^s disease
     Dosage: 10 CAPSULES, DAILY
     Route: 048
     Dates: start: 2015
  2. RYTARY [Suspect]
     Active Substance: CARBIDOPA\LEVODOPA
     Dosage: 36.25-145MG, 3 CAPSULES BY MOUTH AT 6AM, 9AM, 12PM, 3PM AND TAKE 2 CAPSULES BY AT 6PM (TOTAL 14 CAPS
     Route: 048
  3. RYTARY [Suspect]
     Active Substance: CARBIDOPA\LEVODOPA
     Dosage: 7 CAPSULES, DAILY
     Route: 048
  4. RYTARY [Suspect]
     Active Substance: CARBIDOPA\LEVODOPA
     Dosage: 36.25-145MG, 3 CAPSULES BY MOUTH AT 6AM, 9AM, 12PM, 3PM AND TAKE 2 CAPSULES BY AT 6PM (TOTAL 14 CAPS
     Route: 048
  5. RYTARY [Suspect]
     Active Substance: CARBIDOPA\LEVODOPA
     Dosage: 36.25-145 MG WITH DIRECTIONS OF TAKE 4 CAPSULES PO AT 6AM, 9AM, 12PM, 3PM, 6PM, AND 9PM
     Route: 048
     Dates: start: 20231110
  6. RYTARY [Suspect]
     Active Substance: CARBIDOPA\LEVODOPA
     Dosage: 36.25-145 MG, 3 CAPSULES AT 6 AM, 9 AM, 12 PM, 3PM AND TAKE 2 CAP AT 6 PM
     Route: 048
  7. RYTARY [Suspect]
     Active Substance: CARBIDOPA\LEVODOPA
     Dosage: 36.25-145 MG, 4 CAPS AT 6 AM, 9 AM, 12 PM AND 3 PM
     Route: 048
     Dates: start: 20231113
  8. RYTARY [Suspect]
     Active Substance: CARBIDOPA\LEVODOPA
     Dosage: 36.25-145MG (3 CAPSULES BY MOUTH THREE TIMES A DAY)
     Route: 048
     Dates: start: 20240118
  9. RYTARY [Suspect]
     Active Substance: CARBIDOPA\LEVODOPA
     Dosage: 36.25-145MG (TAKING 3 CAPSULES BY MOUTH FIVE TIMES A DAY AND TAKE 1 CAPSULE AT 9PM)
     Route: 048
     Dates: start: 20240209

REACTIONS (5)
  - Abnormal behaviour [Unknown]
  - Impaired work ability [Unknown]
  - Accidental exposure to product [Unknown]
  - Wrong technique in product usage process [Unknown]
  - Extra dose administered [Unknown]

NARRATIVE: CASE EVENT DATE: 20200330
